FAERS Safety Report 19200129 (Version 1)
Quarter: 2021Q2

REPORT INFORMATION
  Report Type: Spontaneous
  Country: US (occurrence: US)
  Receive Date: 20210430
  Receipt Date: 20210430
  Transmission Date: 20210717
  Serious: Yes (Hospitalization)
  Sender: FDA-Public Use
  Company Number: US-MYLANLABS-2021M1024925

PATIENT
  Age: 52 Year
  Sex: Male
  Weight: 142 kg

DRUGS (7)
  1. PROPOFOL. [Concomitant]
     Active Substance: PROPOFOL
     Indication: SEDATIVE THERAPY
     Route: 065
  2. DANTROLENE. [Suspect]
     Active Substance: DANTROLENE SODIUM
     Indication: HYPERTHERMIA
     Dosage: 250 MILLIGRAM
     Route: 042
  3. DOBUTAMINE [Concomitant]
     Active Substance: DOBUTAMINE HYDROCHLORIDE
     Indication: CARDIAC FAILURE
     Route: 065
  4. DEXMEDETOMIDINE. [Suspect]
     Active Substance: DEXMEDETOMIDINE
     Indication: AGITATION
     Dosage: INFUSION RATE: 0.9?1.5 MCG/KG/HR
  5. FENTANYL. [Concomitant]
     Active Substance: FENTANYL
     Indication: SEDATIVE THERAPY
     Route: 065
  6. DEXMEDETOMIDINE. [Suspect]
     Active Substance: DEXMEDETOMIDINE
     Dosage: INFUSION RATE: 0.2?1.5 MCG/KG/MIN (RE?ADMINISTRATION)
  7. PARACETAMOL [Suspect]
     Active Substance: ACETAMINOPHEN
     Indication: HYPERTHERMIA
     Route: 042

REACTIONS (3)
  - Hyperthermia [Recovered/Resolved]
  - Drug ineffective [Unknown]
  - Off label use [Unknown]
